FAERS Safety Report 4398195-1 (Version None)
Quarter: 2004Q3

REPORT INFORMATION
  Report Type: 
  Country: None (occurrence: None)
  Receive Date: 20040714
  Receipt Date: 20040714
  Transmission Date: 20050211
  Serious: Yes (Life-Threatening)
  Sender: FDA-Public Use
  Company Number: None

PATIENT
  Sex: Male

DRUGS (5)
  1. DIAZEPAM [Suspect]
     Indication: ANXIETY
     Dosage: 10 MG QID ORAL
     Route: 048
     Dates: start: 20040621, end: 20040628
  2. ALPRAZOLAM [Suspect]
     Indication: SLEEP DISORDER
     Dosage: 2 MG TID ORAL
     Route: 048
     Dates: start: 20040627, end: 20040628
  3. BACLOFEN [Concomitant]
  4. SOMA [Concomitant]
  5. NEURONTIN [Concomitant]

REACTIONS (3)
  - DEPRESSED LEVEL OF CONSCIOUSNESS [None]
  - HYPOXIA [None]
  - SEDATION [None]
